FAERS Safety Report 8151594-4 (Version None)
Quarter: 2012Q1

REPORT INFORMATION
  Report Type: 
  Country: None (occurrence: None)
  Receive Date: 20120220
  Receipt Date: 20120216
  Transmission Date: 20120608
  Serious: Yes (Death)
  Sender: FDA-Public Use
  Company Number: US-ASTRAZENECA-2008UW26432

PATIENT
  Age: 52 Year
  Sex: Male
  Weight: 80.3 kg

DRUGS (11)
  1. RIARDA [Concomitant]
  2. CARVADILO [Concomitant]
  3. ATACAND [Suspect]
     Route: 048
  4. LASIZ [Concomitant]
  5. AMNIPRODONE [Concomitant]
  6. PREDNISONE [Concomitant]
  7. LEXAPRO [Concomitant]
  8. KLOZAPIN [Concomitant]
  9. ASPIRIN [Concomitant]
  10. SPIRALACTONE [Concomitant]
  11. SIMVASTATIN [Concomitant]

REACTIONS (4)
  - BEDRIDDEN [None]
  - DEATH [None]
  - DEPRESSION [None]
  - INAPPROPRIATE AFFECT [None]
